FAERS Safety Report 19354983 (Version 1)
Quarter: 2021Q2

REPORT INFORMATION
  Report Type: Spontaneous
  Country: US (occurrence: US)
  Receive Date: 20210601
  Receipt Date: 20210601
  Transmission Date: 20210717
  Serious: No
  Sender: FDA-Public Use
  Company Number: US-DRREDDYS-USA/USA/21/0135950

PATIENT
  Age: 50 Year
  Sex: Female

DRUGS (1)
  1. ZENATANE [Suspect]
     Active Substance: ISOTRETINOIN
     Indication: PRODUCT USED FOR UNKNOWN INDICATION
     Dosage: RMA ISSUE DATE: 2/FEBRUARY/2021 12:48:07 PM, 8/MARCH/2021 11:58:33 AM, 31/MARCH/2021 2:58:42 PM, 16/

REACTIONS (1)
  - Adverse drug reaction [Unknown]
